FAERS Safety Report 11689709 (Version 1)
Quarter: 2015Q4

REPORT INFORMATION
  Report Type: Spontaneous
  Country: US (occurrence: None)
  Receive Date: 20151030
  Receipt Date: 20151030
  Transmission Date: 20160304
  Serious: Yes (Other)
  Sender: FDA-Public Use
  Company Number: None

PATIENT
  Age: 76 Year
  Sex: Male
  Weight: 63.5 kg

DRUGS (1)
  1. TAMSULOSIN HCL 0.4 MG [Suspect]
     Active Substance: TAMSULOSIN
     Indication: BENIGN PROSTATIC HYPERPLASIA
     Dosage: 1 PILL
     Route: 048

REACTIONS (3)
  - Retching [None]
  - Product size issue [None]
  - Product difficult to swallow [None]

NARRATIVE: CASE EVENT DATE: 20150930
